FAERS Safety Report 8336942-4 (Version None)
Quarter: 2012Q2

REPORT INFORMATION
  Report Type: 
  Country: None (occurrence: None)
  Receive Date: 20120504
  Receipt Date: 20120216
  Transmission Date: 20120825
  Serious: No
  Sender: FDA-Public Use
  Company Number: US-GLAXOSMITHKLINE-A0966210A

PATIENT
  Age: 78 Year
  Sex: Female

DRUGS (3)
  1. HORIZANT [Suspect]
     Indication: RESTLESS LEGS SYNDROME
     Dosage: 600MG PER DAY
     Route: 048
     Dates: start: 20120215, end: 20120216
  2. TRIAMTERENE [Concomitant]
  3. ATENOLOL [Concomitant]

REACTIONS (4)
  - DEPRESSION [None]
  - SOMNOLENCE [None]
  - DYSPNOEA [None]
  - CHEST PAIN [None]
